FAERS Safety Report 5811160-X (Version None)
Quarter: 2008Q3

REPORT INFORMATION
  Report Type: 
  Country: None (occurrence: None)
  Receive Date: 20080716
  Receipt Date: 20080707
  Transmission Date: 20090109
  Serious: Yes (Other)
  Sender: FDA-Public Use
  Company Number: CA-JNJFOC-20080605498

PATIENT

DRUGS (2)
  1. METHYLPHENIDATE HCL [Suspect]
     Dosage: TWICE A DAY FOR 11 DAYS
     Route: 048
  2. METHYLPHENIDATE HCL [Suspect]
     Indication: DEMENTIA ALZHEIMER'S TYPE
     Dosage: TWICE A DAY FOR 3 DAYS
     Route: 048

REACTIONS (5)
  - AGGRESSION [None]
  - AGITATION [None]
  - ANGER [None]
  - DELUSION [None]
  - FLUSHING [None]
